FAERS Safety Report 17767875 (Version 1)
Quarter: 2020Q2

REPORT INFORMATION
  Report Type: Spontaneous
  Country: US (occurrence: US)
  Receive Date: 20200511
  Receipt Date: 20200511
  Transmission Date: 20200714
  Serious: Yes (Other)
  Sender: FDA-Public Use
  Company Number: US-MEDEXUS PHARMA, INC.-2020MED00117

PATIENT
  Sex: Female

DRUGS (2)
  1. RASUVO [Suspect]
     Active Substance: METHOTREXATE SODIUM
     Indication: SCLERITIS
     Dosage: 15 MG, 1X/WEEK INJECTED INTO THE THIGH
     Dates: start: 20200416
  2. NORTHERA [Suspect]
     Active Substance: DROXIDOPA
     Dosage: UNK

REACTIONS (6)
  - Dysstasia [Not Recovered/Not Resolved]
  - Tinnitus [Not Recovered/Not Resolved]
  - Blood pressure increased [Not Recovered/Not Resolved]
  - Drug interaction [Unknown]
  - Off label use [Unknown]
  - Unevaluable event [Not Recovered/Not Resolved]

NARRATIVE: CASE EVENT DATE: 20200416
